FAERS Safety Report 4602765-2 (Version None)
Quarter: 2005Q1

REPORT INFORMATION
  Report Type: 
  Country: None (occurrence: None)
  Receive Date: 20050309
  Receipt Date: 20050225
  Transmission Date: 20050727
  Serious: Yes (Hospitalization)
  Sender: FDA-Public Use
  Company Number: BE-JNJFOC-20040905836

PATIENT
  Sex: Male

DRUGS (1)
  1. RISPERDAL CONSTA [Suspect]
     Route: 030

REACTIONS (4)
  - PSYCHOMOTOR SKILLS IMPAIRED [None]
  - SALIVARY HYPERSECRETION [None]
  - SOMNOLENCE [None]
  - TREMOR [None]
